FAERS Safety Report 4364977-5 (Version None)
Quarter: 2004Q2

REPORT INFORMATION
  Report Type: 
  Country: None (occurrence: None)
  Receive Date: 20040521
  Receipt Date: 20040511
  Transmission Date: 20050107
  Serious: Yes (Hospitalization)
  Sender: FDA-Public Use
  Company Number: 2004031391

PATIENT
  Age: 45 Year
  Sex: Female

DRUGS (6)
  1. ATARAX [Suspect]
     Indication: ILL-DEFINED DISORDER
     Dosage: 50 MG (50 MG, 4 IN 1 D), INTRAVENOUS
     Route: 042
     Dates: start: 20040422, end: 20040423
  2. DICLOFENAC SODIUM [Concomitant]
  3. ROPIVACAINE HYDROCHLORIDE (ROPIVACAINE HYDROCHLORIDE) [Concomitant]
  4. FENTANYL CITRATE [Concomitant]
  5. PENTAZOCINE LACTATE [Concomitant]
  6. ATARAX [Suspect]
     Dosage: 50 MG (50 MG, 1 IN D), INTRAMUSCULAR
     Route: 030

REACTIONS (4)
  - INJECTION SITE DISCOLOURATION [None]
  - INJECTION SITE INDURATION [None]
  - INJECTION SITE ULCER [None]
  - POST PROCEDURAL PAIN [None]
